FAERS Safety Report 8905661 (Version 1)
Quarter: 2012Q4

REPORT INFORMATION
  Report Type: 
  Country: US (occurrence: US)
  Receive Date: 20121109
  Receipt Date: 20121109
  Transmission Date: 20130627
  Serious: No
  Sender: FDA-Public Use
  Company Number: US-B.I. PHARMACEUTICALS,INC./RIDGEFIELD-2012-BP-27177BP

PATIENT
  Sex: Male

DRUGS (5)
  1. TRADJENTA [Suspect]
     Indication: TYPE 2 DIABETES MELLITUS
     Dosage: 5 mg
     Route: 048
     Dates: start: 20121015, end: 20121031
  2. METFORMIN [Concomitant]
     Dosage: 2000 mg
  3. LOSARTAN [Concomitant]
     Dosage: 100 mg
  4. LOVASTATIN [Concomitant]
     Dosage: 40 mg
  5. AMLODIPINE [Concomitant]
     Dosage: 10 mg

REACTIONS (1)
  - Dizziness [Recovered/Resolved]
